FAERS Safety Report 15037213 (Version 7)
Quarter: 2018Q4

REPORT INFORMATION
  Report Type: Report from Study
  Country: BR (occurrence: BR)
  Receive Date: 20180620
  Receipt Date: 20181224
  Transmission Date: 20190204
  Serious: Yes (Hospitalization)
  Sender: FDA-Public Use
  Company Number: BR-PFIZER INC-2018236901

PATIENT
  Age: 55 Year
  Sex: Female
  Weight: 85 kg

DRUGS (15)
  1. TOFACITINIB CITRATE [Suspect]
     Active Substance: TOFACITINIB CITRATE
     Indication: RHEUMATOID ARTHRITIS
     Dosage: 20 MG, DAILY
     Route: 048
     Dates: start: 20161019, end: 20180212
  2. CLAVULIN /00756801/ [Concomitant]
     Active Substance: AMOXICILLIN\CLAVULANIC ACID
     Indication: ACUTE SINUSITIS
     Dosage: 875 MG, 2X/DAY
     Route: 048
     Dates: start: 20180117
  3. DEFLAZACORT [Concomitant]
     Active Substance: DEFLAZACORT
     Indication: ACUTE SINUSITIS
     Dosage: 30 MG, 1X/DAY
     Route: 048
     Dates: start: 20180117
  4. INSULIN, REGULAR [Concomitant]
     Active Substance: INSULIN NOS
     Indication: TYPE 2 DIABETES MELLITUS
     Dosage: 10 IU, 3 TIMES A DAY
     Route: 058
     Dates: start: 2012
  5. OMEPRAZOLE. [Concomitant]
     Active Substance: OMEPRAZOLE
     Indication: GASTRITIS
     Dosage: 20 MG, 1X/DAY
     Route: 048
     Dates: start: 2010
  6. VALSARTAN. [Concomitant]
     Active Substance: VALSARTAN
     Indication: HYPERTENSION
     Dosage: 160 MG, 1X/DAY
     Route: 048
     Dates: start: 20171130
  7. INDAPAMIDE. [Concomitant]
     Active Substance: INDAPAMIDE
     Indication: HYPERTENSION
     Dosage: 1.5 MG, ONCE A DAY
     Route: 048
     Dates: start: 2012
  8. DIPYRONE [Concomitant]
     Active Substance: DIPYRONE
     Indication: ACUTE SINUSITIS
     Dosage: 1 DF, 3X/DAY
     Route: 048
     Dates: start: 20180117
  9. PREDNISONE. [Concomitant]
     Active Substance: PREDNISONE
     Indication: ARTHRALGIA
     Dosage: 5 MG, 1X/DAY
     Route: 048
     Dates: start: 20170302
  10. METADOXIL [Concomitant]
     Active Substance: METADOXINE
     Indication: GAMMA-GLUTAMYLTRANSFERASE INCREASED
     Dosage: 500 MG, 3X/DAY
     Route: 048
     Dates: start: 20171025
  11. GLIBENCLAMIDE [Concomitant]
     Active Substance: GLYBURIDE
     Indication: TYPE 2 DIABETES MELLITUS
     Dosage: 5 MG, 2X/DAY
     Route: 048
     Dates: start: 20171129
  12. METHOTREXATE SODIUM. [Suspect]
     Active Substance: METHOTREXATE SODIUM
     Indication: RHEUMATOID ARTHRITIS
     Dosage: 2.5 MG, 6 CAPSULES ONCE A WEEK
     Dates: start: 2013, end: 20170518
  13. PARACETAMOL [Concomitant]
     Active Substance: ACETAMINOPHEN
     Indication: ARTHRALGIA
     Dosage: 500 MG, 2X/DAY
     Route: 048
     Dates: start: 20170302
  14. METFORMIN [Concomitant]
     Active Substance: METFORMIN HYDROCHLORIDE
     Indication: TYPE 2 DIABETES MELLITUS
     Dosage: 850 MG, 3 TIMES A DAY
     Route: 048
     Dates: start: 201503
  15. AMLODIPINE [Concomitant]
     Active Substance: AMLODIPINE BESYLATE
     Indication: HYPERTENSION
     Dosage: 5 MG, 1X/DAY
     Route: 048
     Dates: start: 2012

REACTIONS (1)
  - Hepatic cirrhosis [Not Recovered/Not Resolved]

NARRATIVE: CASE EVENT DATE: 20180604
